FAERS Safety Report 13510740 (Version 4)
Quarter: 2017Q3

REPORT INFORMATION
  Report Type: Spontaneous
  Country: AU (occurrence: AU)
  Receive Date: 20170503
  Receipt Date: 20170831
  Transmission Date: 20171127
  Serious: Yes (Hospitalization)
  Sender: FDA-Public Use
  Company Number: PHHY2017AU064221

PATIENT
  Age: 59 Year
  Sex: Female

DRUGS (12)
  1. TWYNSTA [Concomitant]
     Active Substance: AMLODIPINE BESYLATE\TELMISARTAN
     Indication: HYPERTENSION
     Dosage: UNK
     Route: 065
     Dates: start: 20150505
  2. DULOXETINE. [Suspect]
     Active Substance: DULOXETINE
     Dosage: 60 MG, MORNING
     Route: 048
  3. ASTAXANTHIN BIO LIFE [Concomitant]
     Indication: MEDICAL DIET
     Dosage: UNK
     Route: 065
     Dates: start: 20140424
  4. DULOXETINE. [Suspect]
     Active Substance: DULOXETINE
     Dosage: 30 MG, MORNING
     Route: 065
  5. DULOXETINE. [Suspect]
     Active Substance: DULOXETINE
     Dosage: 30 MG, MORNING
     Route: 065
     Dates: start: 20170628
  6. DIAMICRON [Concomitant]
     Active Substance: GLICLAZIDE
     Indication: TYPE 2 DIABETES MELLITUS
     Dosage: UNK
     Route: 065
     Dates: start: 2011
  7. DIAFORMIN [Concomitant]
     Active Substance: METFORMIN HYDROCHLORIDE
     Indication: TYPE 2 DIABETES MELLITUS
     Dosage: UNK
     Route: 065
     Dates: start: 2011
  8. SEROQUEL [Concomitant]
     Active Substance: QUETIAPINE FUMARATE
     Indication: DEPRESSION
     Dosage: UNK
     Route: 065
     Dates: start: 20170403
  9. LETROZOLE. [Suspect]
     Active Substance: LETROZOLE
     Indication: BREAST CANCER
     Dosage: 2.5 MG, QD, CONTINUOUSLY
     Route: 048
     Dates: start: 20140506
  10. DULOXETINE. [Suspect]
     Active Substance: DULOXETINE
     Indication: DEPRESSION
     Dosage: 60 MG, MORNING
     Route: 048
     Dates: start: 20130423
  11. FISH OIL [Concomitant]
     Active Substance: FISH OIL
     Indication: MEDICAL DIET
     Dosage: UNK
     Route: 065
     Dates: start: 20140424
  12. DENOSUMAB [Concomitant]
     Active Substance: DENOSUMAB
     Indication: METASTASES TO BONE
     Dosage: UNK
     Route: 065
     Dates: start: 20150113

REACTIONS (1)
  - Organic brain syndrome [Recovered/Resolved]

NARRATIVE: CASE EVENT DATE: 20170403
